FAERS Safety Report 21487070 (Version 1)
Quarter: 2022Q4

REPORT INFORMATION
  Report Type: Spontaneous
  Country: US (occurrence: None)
  Receive Date: 20221020
  Receipt Date: 20221020
  Transmission Date: 20230112
  Serious: No
  Sender: FDA-Public Use
  Company Number: None

PATIENT
  Sex: Female

DRUGS (5)
  1. AMBRISENTAN [Suspect]
     Active Substance: AMBRISENTAN
     Indication: Pulmonary arterial hypertension
     Dosage: FREQUENCY : DAILY;?
     Route: 048
  2. LASIX [Concomitant]
     Active Substance: FUROSEMIDE
  3. SILDENAFIL CITRATE [Concomitant]
     Active Substance: SILDENAFIL CITRATE
  4. ENTRESTO [Concomitant]
     Active Substance: SACUBITRIL\VALSARTAN
  5. CARVEDILOL [Concomitant]
     Active Substance: CARVEDILOL

REACTIONS (6)
  - Product dose omission in error [None]
  - Adverse drug reaction [None]
  - Drug effect less than expected [None]
  - Fatigue [None]
  - Sinus congestion [None]
  - Multiple allergies [None]
